FAERS Safety Report 8082534 (Version 5)
Quarter: 2013Q1

REPORT INFORMATION
  Report Type: Report from Study
  Country: DE (occurrence: DE)
  Receive Date: 20110809
  Receipt Date: 20130131
  Transmission Date: 20140127
  Serious: Yes (Hospitalization, Other)
  Sender: FDA-Public Use
  Company Number: PHHY2011DE70160

PATIENT
  Age: 69 Year
  Sex: Male
  Weight: 63 kg

DRUGS (8)
  1. ZOLEDRONATE [Suspect]
     Indication: METASTASES TO BONE
     Dosage: 4 MG/5 ML
     Route: 042
     Dates: start: 20110530, end: 20110530
  2. MCP [Concomitant]
     Dosage: 40 MG, DAILY
     Route: 048
     Dates: start: 2011
  3. CALCIUM [Concomitant]
     Dosage: 600 MG, DAILY
     Route: 048
  4. VITAMIN D [Concomitant]
     Dosage: 400 IE/DAY
     Route: 048
  5. NOVALGIN [Concomitant]
     Dosage: 4000 MG, DAILY
     Route: 048
  6. TRAMADOL [Concomitant]
     Dosage: 400 MG, DAILY
     Route: 048
  7. PREDNISOLON [Concomitant]
     Dosage: 5 MG/2X2TBL/DAY
     Route: 048
     Dates: start: 20110912
  8. ZYTIGA [Concomitant]
     Dosage: 250 MG/ 1X4 TBL/ DAY
     Route: 048
     Dates: start: 20110912

REACTIONS (12)
  - Melaena [Not Recovered/Not Resolved]
  - Gastric ulcer [Not Recovered/Not Resolved]
  - Weight decreased [Not Recovered/Not Resolved]
  - Pancytopenia [Not Recovered/Not Resolved]
  - General physical health deterioration [Recovered/Resolved]
  - Urinary tract infection [Recovered/Resolved]
  - Skin haemorrhage [Not Recovered/Not Resolved]
  - Asthenia [Recovered/Resolved]
  - Decreased appetite [Recovered/Resolved]
  - Anaemia [Recovered/Resolved]
  - Thrombocytopenia [Recovered/Resolved]
  - Bone pain [Recovered/Resolved]
